FAERS Safety Report 5806849-2 (Version None)
Quarter: 2008Q3

REPORT INFORMATION
  Report Type: 
  Country: None (occurrence: None)
  Receive Date: 20080711
  Receipt Date: 20080703
  Transmission Date: 20090109
  Serious: Yes (Hospitalization)
  Sender: FDA-Public Use
  Company Number: IT-BRISTOL-MYERS SQUIBB COMPANY-14246383

PATIENT
  Sex: Female

DRUGS (4)
  1. METFORMIN HCL [Suspect]
     Indication: TYPE 2 DIABETES MELLITUS
     Route: 048
     Dates: start: 20030101, end: 20080318
  2. LASIX [Concomitant]
     Route: 048
  3. GLIMEPIRIDE [Concomitant]
     Route: 048
     Dates: end: 20080318
  4. EUTHYROX [Concomitant]
     Route: 048

REACTIONS (2)
  - DYSPNOEA [None]
  - LACTIC ACIDOSIS [None]
